FAERS Safety Report 20569268 (Version 1)
Quarter: 2022Q1

REPORT INFORMATION
  Report Type: Spontaneous
  Country: CA (occurrence: CA)
  Receive Date: 20220308
  Receipt Date: 20220308
  Transmission Date: 20220423
  Serious: Yes (Hospitalization)
  Sender: FDA-Public Use
  Company Number: CA-ABBVIE-22K-028-4307342-00

PATIENT
  Age: 15 Year
  Sex: Male
  Weight: 74 kg

DRUGS (2)
  1. HUMIRA [Suspect]
     Active Substance: ADALIMUMAB
     Indication: Crohn^s disease
     Route: 058
  2. FERAMAX [Concomitant]
     Active Substance: IRON\POLYSACCHARIDES
     Indication: Product used for unknown indication

REACTIONS (2)
  - Immune thrombocytopenia [Recovered/Resolved]
  - Thrombocytopenia [Recovered/Resolved]
